FAERS Safety Report 17798580 (Version 1)
Quarter: 2020Q2

REPORT INFORMATION
  Report Type: Spontaneous
  Country: PL (occurrence: PL)
  Receive Date: 20200518
  Receipt Date: 20200518
  Transmission Date: 20200714
  Serious: Yes (Other)
  Sender: FDA-Public Use
  Company Number: PL-PFIZER INC-2020194907

PATIENT
  Age: 68 Year
  Sex: Female

DRUGS (4)
  1. KISQALI [Suspect]
     Active Substance: RIBOCICLIB
     Indication: BREAST CANCER METASTATIC
     Dosage: 400 MG
     Route: 065
     Dates: start: 20191207
  2. ZOLEDRONIC ACID [Suspect]
     Active Substance: ZOLEDRONIC ACID
     Indication: BREAST CANCER
     Dosage: 4 MG (EVERY 28 DAYS FOR THE FIRST THREE MONTHS OF THE TREATMENT, THEN EVERY THREE MONTHS)
     Route: 042
  3. LETROZOLE. [Concomitant]
     Active Substance: LETROZOLE
     Dosage: 2.5 MG, 1X/DAY
     Dates: start: 20190920
  4. KISQALI [Suspect]
     Active Substance: RIBOCICLIB
     Dosage: 600 MG (FOR 21 DAYS WITH WITH 7 DAY BREAK)
     Route: 065
     Dates: start: 20190926, end: 20191104

REACTIONS (5)
  - Liver function test increased [Recovered/Resolved]
  - Hepatotoxicity [Recovered/Resolved]
  - Transaminases increased [Recovered/Resolved]
  - Decreased appetite [Unknown]
  - Asthenia [Unknown]
